FAERS Safety Report 5692114-3 (Version None)
Quarter: 2008Q2

REPORT INFORMATION
  Report Type: 
  Country: None (occurrence: None)
  Receive Date: 20080402
  Receipt Date: 20080325
  Transmission Date: 20081010
  Serious: Yes (Other)
  Sender: FDA-Public Use
  Company Number: US-PFIZER INC-2007102392

PATIENT
  Sex: Male
  Weight: 88.6 kg

DRUGS (4)
  1. CHANTIX [Suspect]
     Indication: SMOKING CESSATION THERAPY
     Dates: start: 20071101, end: 20071127
  2. CRESTOR [Suspect]
     Indication: BLOOD CHOLESTEROL
  3. HERBAL PREPARATION [Concomitant]
  4. VITAMINS [Concomitant]

REACTIONS (7)
  - ABNORMAL DREAMS [None]
  - ARTHRALGIA [None]
  - DIARRHOEA [None]
  - MYALGIA [None]
  - NASOPHARYNGITIS [None]
  - PNEUMONIA [None]
  - SLEEP DISORDER [None]
